FAERS Safety Report 25385131 (Version 6)
Quarter: 2025Q3

REPORT INFORMATION
  Report Type: Report from Study
  Country: CA (occurrence: CA)
  Receive Date: 20250602
  Receipt Date: 20250818
  Transmission Date: 20251021
  Serious: Yes (Hospitalization, Other)
  Sender: TAKEDA
  Company Number: CA-TAKEDA-2025TUS041068

PATIENT
  Age: 18 Year
  Sex: Female

DRUGS (5)
  1. VEDOLIZUMAB [Suspect]
     Active Substance: VEDOLIZUMAB
     Indication: Colitis ulcerative
  2. VEDOLIZUMAB [Suspect]
     Active Substance: VEDOLIZUMAB
  3. VEDOLIZUMAB [Suspect]
     Active Substance: VEDOLIZUMAB
  4. BUDESONIDE [Concomitant]
     Active Substance: BUDESONIDE
  5. MESALAMINE [Concomitant]
     Active Substance: MESALAMINE

REACTIONS (14)
  - Serotonin syndrome [Recovering/Resolving]
  - Blood pressure abnormal [Recovering/Resolving]
  - Colitis [Unknown]
  - Diarrhoea [Unknown]
  - Haematochezia [Unknown]
  - Heart rate increased [Recovering/Resolving]
  - Asthenia [Unknown]
  - Rectal haemorrhage [Unknown]
  - Vomiting [Unknown]
  - Frequent bowel movements [Unknown]
  - Hormone level abnormal [Unknown]
  - Drug ineffective [Recovering/Resolving]
  - Dizziness [Unknown]
  - Nausea [Unknown]

NARRATIVE: CASE EVENT DATE: 20250414
